FAERS Safety Report 9476879 (Version 1)
Quarter: 2013Q3

REPORT INFORMATION
  Report Type: Report from Study
  Country: US (occurrence: US)
  Receive Date: 20130826
  Receipt Date: 20130826
  Transmission Date: 20140515
  Serious: Yes (Hospitalization)
  Sender: FDA-Public Use
  Company Number: US-GLAXOSMITHKLINE-A0967211C

PATIENT
  Age: 55 Year
  Sex: Female
  Weight: 82.2 kg

DRUGS (9)
  1. DABRAFENIB [Suspect]
     Indication: METASTATIC MALIGNANT MELANOMA
     Dosage: 150MG TWICE PER DAY
     Route: 048
     Dates: start: 20120214, end: 20120911
  2. TRAMETINIB [Suspect]
     Indication: METASTATIC MALIGNANT MELANOMA
     Dosage: 2MG PER DAY
     Route: 048
     Dates: start: 20120215, end: 20120911
  3. ZOFRAN [Concomitant]
     Indication: NAUSEA
     Dosage: 4MG PER DAY
     Route: 042
     Dates: start: 20120914, end: 20120914
  4. 0.9% SODIUM CHLORIDE [Concomitant]
     Dosage: 1000ML SINGLE DOSE
     Route: 042
     Dates: start: 20120915
  5. 0.9% SODIUM CHLORIDE [Concomitant]
     Dosage: 500ML SINGLE DOSE
     Route: 042
     Dates: start: 20120915, end: 20120915
  6. OXYCODONE [Concomitant]
     Indication: PROCEDURAL PAIN
     Dosage: 5MG TWELVE TIMES PER DAY
     Route: 048
     Dates: start: 20120919
  7. KEPPRA [Concomitant]
     Indication: CONVULSION
     Dosage: 500MG TWICE PER DAY
     Route: 048
     Dates: start: 20120919
  8. COLACE [Concomitant]
     Indication: PROPHYLAXIS
     Dosage: 250MG TWICE PER DAY
     Dates: start: 20120919, end: 20121019
  9. DEXAMETHASONE [Concomitant]
     Indication: PROCEDURAL SITE REACTION
     Route: 048
     Dates: start: 20120919, end: 20121017

REACTIONS (1)
  - Glioblastoma [Recovered/Resolved]
